FAERS Safety Report 6559527-9 (Version None)
Quarter: 2010Q1

REPORT INFORMATION
  Report Type: 
  Country: None (occurrence: None)
  Receive Date: 20100129
  Receipt Date: 20090905
  Transmission Date: 20100710
  Serious: No
  Sender: FDA-Public Use
  Company Number: US-ABBOTT-09P-163-0595634-00

PATIENT
  Sex: Female
  Weight: 111.23 kg

DRUGS (5)
  1. HUMIRA [Suspect]
     Indication: CROHN'S DISEASE
     Dates: start: 20060101
  2. HUMIRA [Suspect]
  3. HUMIRA [Suspect]
  4. ASACOL [Concomitant]
     Indication: DRUG USE FOR UNKNOWN INDICATION
  5. ALIGN PROBIOTIC [Concomitant]
     Indication: DRUG USE FOR UNKNOWN INDICATION

REACTIONS (3)
  - DRY SKIN [None]
  - SKIN EXFOLIATION [None]
  - SKIN ULCER [None]
